FAERS Safety Report 5468674-4 (Version None)
Quarter: 2007Q3

REPORT INFORMATION
  Report Type: 
  Country: None (occurrence: None)
  Receive Date: 20070924
  Receipt Date: 20070914
  Transmission Date: 20080115
  Serious: Yes (Death, Hospitalization)
  Sender: FDA-Public Use
  Company Number: WAES 0709ESP00001

PATIENT
  Age: 50 Year
  Sex: Female

DRUGS (5)
  1. CANCIDAS [Suspect]
     Indication: LOWER RESPIRATORY TRACT INFECTION FUNGAL
     Dosage: 70 MG/DAILY IV
     Route: 042
     Dates: start: 20070513, end: 20070517
  2. CYCLOSPORINE [Suspect]
     Indication: APLASTIC ANAEMIA
     Dosage: 400 MG/BID PO
     Route: 048
     Dates: start: 20070426, end: 20070618
  3. SULFAMETHOXAZOLE TRIMETHOPRIM [Suspect]
     Indication: RESPIRATORY TRACT INFECTION
     Dosage: 800-160 MG/BID PO
     Route: 048
     Dates: start: 20070426, end: 20070618
  4. MYOLASTAN [Concomitant]
  5. NAPROXEN [Concomitant]

REACTIONS (3)
  - BILIRUBIN CONJUGATED INCREASED [None]
  - JAUNDICE [None]
  - RESPIRATORY FAILURE [None]
